FAERS Safety Report 8950977 (Version 1)
Quarter: 2012Q4

REPORT INFORMATION
  Report Type: 
  Country: JP (occurrence: JP)
  Receive Date: 20121207
  Receipt Date: 20121207
  Transmission Date: 20130627
  Serious: Yes (Other)
  Sender: FDA-Public Use
  Company Number: JP-PFIZER INC-2012272667

PATIENT
  Age: 39 Year
  Sex: Male

DRUGS (6)
  1. AMIODARONE HCL [Suspect]
     Indication: HEART FAILURE
     Dosage: UNK
     Route: 048
  2. AMIODARONE HCL [Suspect]
     Indication: VENTRICULAR TACHYCARDIA
  3. AMIODARONE HCL [Suspect]
     Indication: ATRIAL TACHYCARDIA
  4. SOTALOL [Concomitant]
     Indication: HEART FAILURE
     Dosage: UNK
     Route: 048
  5. SOTALOL [Concomitant]
     Indication: VENTRICULAR TACHYCARDIA
  6. SOTALOL [Concomitant]
     Indication: ATRIAL TACHYCARDIA

REACTIONS (2)
  - Thyroiditis [Unknown]
  - Drug ineffective [Unknown]
